FAERS Safety Report 22587822 (Version 2)
Quarter: 2023Q2

REPORT INFORMATION
  Report Type: Spontaneous
  Country: RS (occurrence: RS)
  Receive Date: 20230612
  Receipt Date: 20230620
  Transmission Date: 20230722
  Serious: Yes (Other)
  Sender: FDA-Public Use
  Company Number: RS-009507513-2305SRB010003

PATIENT
  Sex: Male

DRUGS (3)
  1. RECARBRIO [Suspect]
     Active Substance: CILASTATIN\IMIPENEM ANHYDROUS\RELEBACTAM ANHYDROUS
     Dosage: 1.25 MILLIGRAM, QID
     Route: 042
     Dates: start: 202210
  2. RECARBRIO [Suspect]
     Active Substance: CILASTATIN\IMIPENEM ANHYDROUS\RELEBACTAM ANHYDROUS
     Dosage: 1.25 MILLIGRAM, QID
     Route: 042
     Dates: start: 20221219
  3. RECARBRIO [Suspect]
     Active Substance: CILASTATIN\IMIPENEM ANHYDROUS\RELEBACTAM ANHYDROUS
     Dosage: 0.625 MILLIGRAM, QID
     Route: 042
     Dates: start: 20230419

REACTIONS (2)
  - Renal impairment [Unknown]
  - Treatment failure [Recovered/Resolved]

NARRATIVE: CASE EVENT DATE: 20221001
